FAERS Safety Report 13551627 (Version 1)
Quarter: 2017Q2

REPORT INFORMATION
  Report Type: Spontaneous
  Country: US (occurrence: US)
  Receive Date: 20170516
  Receipt Date: 20170516
  Transmission Date: 20170830
  Serious: No
  Sender: FDA-Public Use
  Company Number: US-APOTEX-2016AP009361

PATIENT

DRUGS (1)
  1. GABAPENTIN. [Suspect]
     Active Substance: GABAPENTIN
     Indication: EAR PAIN
     Dosage: 1-2 CAPSULES TID
     Route: 048

REACTIONS (2)
  - Hepatic steatosis [Unknown]
  - Product use in unapproved indication [Unknown]
